FAERS Safety Report 9748284 (Version 1)
Quarter: 2013Q4

REPORT INFORMATION
  Report Type: Spontaneous
  Country: IT (occurrence: None)
  Receive Date: 20131209
  Receipt Date: 20131209
  Transmission Date: 20140711
  Serious: Yes (Life-Threatening)
  Sender: FDA-Public Use
  Company Number: INT_00346_2013

PATIENT
  Age: 21 Year
  Sex: Female

DRUGS (1)
  1. EFTRIAZON [Suspect]
     Indication: PROPHYLAXIS
     Route: 030
     Dates: start: 20131023, end: 20131023

REACTIONS (3)
  - Pruritus generalised [None]
  - Dyspnoea [None]
  - Asphyxia [None]
